FAERS Safety Report 9941144 (Version 1)
Quarter: 2014Q1

REPORT INFORMATION
  Report Type: Report from Study
  Country: US (occurrence: US)
  Receive Date: 20140303
  Receipt Date: 20140303
  Transmission Date: 20141002
  Serious: No
  Sender: FDA-Public Use
  Company Number: US-ABBVIE-13P-163-1040535-00

PATIENT
  Sex: Male
  Weight: 72.64 kg

DRUGS (13)
  1. HUMIRA [Suspect]
     Indication: PSORIATIC ARTHROPATHY
     Dates: start: 2007
  2. HYDROCODONE [Concomitant]
     Indication: NECK PAIN
  3. HYDROCODONE [Concomitant]
     Indication: SPINAL OSTEOARTHRITIS
  4. HYDROCODONE [Concomitant]
     Indication: BONE DISORDER
  5. NEXIUM HP [Concomitant]
     Indication: GASTROOESOPHAGEAL REFLUX DISEASE
  6. LEVOTHYROXINE SODIUM [Concomitant]
     Indication: HYPOTHYROIDISM
  7. ALTACE [Concomitant]
     Indication: BLOOD PRESSURE INCREASED
  8. LIPITOR [Concomitant]
     Indication: BLOOD CHOLESTEROL INCREASED
  9. ZETIA [Concomitant]
     Indication: BLOOD CHOLESTEROL INCREASED
  10. METOPROLOL [Concomitant]
     Indication: CARDIAC DISORDER
  11. AMBIEN CR [Concomitant]
     Indication: SLEEP DISORDER THERAPY
  12. CYCLOBENZAPRINE [Concomitant]
     Indication: MYALGIA
  13. TEMZAEPAM [Concomitant]
     Indication: SLEEP DISORDER THERAPY

REACTIONS (7)
  - Dry skin [Not Recovered/Not Resolved]
  - Fatigue [Recovered/Resolved]
  - Influenza [Recovered/Resolved]
  - Oropharyngeal pain [Recovered/Resolved]
  - Psoriatic arthropathy [Not Recovered/Not Resolved]
  - Drug ineffective [Not Recovered/Not Resolved]
  - Drug ineffective [Not Recovered/Not Resolved]
